FAERS Safety Report 16929845 (Version 1)
Quarter: 2019Q4

REPORT INFORMATION
  Report Type: Spontaneous
  Country: US (occurrence: US)
  Receive Date: 20191017
  Receipt Date: 20191017
  Transmission Date: 20200122
  Serious: Yes (Hospitalization, Disabling)
  Sender: FDA-Public Use
  Company Number: None

PATIENT
  Age: 33 Year
  Sex: Male
  Weight: 85.5 kg

DRUGS (4)
  1. AMLODOPINE [Concomitant]
     Active Substance: AMLODIPINE BESYLATE
  2. MAGNESIUM [Concomitant]
     Active Substance: MAGNESIUM
  3. VITAMIN D [Concomitant]
     Active Substance: VITAMIN D NOS
  4. CIPROFLOXACIN. [Suspect]
     Active Substance: CIPROFLOXACIN
     Indication: URINARY TRACT INFECTION
     Dates: start: 20180618, end: 20180622

REACTIONS (8)
  - Insomnia [None]
  - Rash [None]
  - Cardiovascular disorder [None]
  - Depression [None]
  - Anxiety [None]
  - Tendon pain [None]
  - Nodule [None]
  - Mental disorder [None]

NARRATIVE: CASE EVENT DATE: 20180701
